FAERS Safety Report 9254306 (Version 2)
Quarter: 2013Q2

REPORT INFORMATION
  Report Type: Spontaneous
  Country: US (occurrence: US)
  Receive Date: 20130425
  Receipt Date: 20130604
  Transmission Date: 20140414
  Serious: Yes (Other)
  Sender: FDA-Public Use
  Company Number: PHEH2013US009119

PATIENT
  Age: 43 Year
  Sex: Female

DRUGS (1)
  1. TASIGNA [Suspect]
     Indication: CHRONIC MYELOID LEUKAEMIA
     Dosage: 150 MG, BID
     Route: 048
     Dates: start: 2010

REACTIONS (3)
  - Myelodysplastic syndrome [Unknown]
  - Refractory anaemia with an excess of blasts [Not Recovered/Not Resolved]
  - Second primary malignancy [Unknown]
